FAERS Safety Report 9311892 (Version 3)
Quarter: 2015Q1

REPORT INFORMATION
  Report Type: Spontaneous
  Country: US (occurrence: None)
  Receive Date: 20130211
  Receipt Date: 20150213
  Transmission Date: 20150721
  Serious: Yes (Other)
  Sender: FDA-Public Use
  Company Number: ADR-2012-02254

PATIENT
  Age: 29 Year
  Sex: Female

DRUGS (2)
  1. DILAUDID (HYDROMORPHONE), BUPIVACAINE [Concomitant]
  2. LIORESAL [Suspect]
     Active Substance: BACLOFEN
     Indication: PAIN
     Dosage: SEE B5

REACTIONS (4)
  - Twiddler^s syndrome [None]
  - Obesity [None]
  - Pain [None]
  - Weight increased [None]

NARRATIVE: CASE EVENT DATE: 20121018
